FAERS Safety Report 6499780-3 (Version None)
Quarter: 2009Q4

REPORT INFORMATION
  Report Type: 
  Country: None (occurrence: None)
  Receive Date: 20091214
  Receipt Date: 20091210
  Transmission Date: 20100525
  Serious: Yes (Hospitalization)
  Sender: FDA-Public Use
  Company Number: 1000000457

PATIENT
  Age: 48 Year
  Sex: Female

DRUGS (7)
  1. THYROID TAB [Suspect]
     Indication: HYPOTHYROIDISM
     Dosage: 120 MG (120 MG, 1 IN 1 D), ORAL
     Route: 048
     Dates: start: 20080501, end: 20080801
  2. THYROID TAB [Suspect]
     Indication: HYPOTHYROIDISM
     Dosage: 60 MG (30 MG, 2 IN 1 D), ORAL
     Route: 048
     Dates: start: 20080801, end: 20081001
  3. THYROID TAB [Suspect]
     Indication: HYPOTHYROIDISM
     Dosage: 120 MG (120 MG, 1 IN 1 D), ORAL
     Route: 048
     Dates: start: 20090301, end: 20091001
  4. TRICOR [Concomitant]
  5. PLAVIX [Concomitant]
  6. ASPIRIN [Concomitant]
  7. NIACIN [Concomitant]

REACTIONS (7)
  - BLOOD PRESSURE INCREASED [None]
  - HOT FLUSH [None]
  - MUSCLE SPASMS [None]
  - MUSCULOSKELETAL STIFFNESS [None]
  - MYOCARDIAL INFARCTION [None]
  - PAIN IN EXTREMITY [None]
  - PALPITATIONS [None]
